FAERS Safety Report 18948131 (Version 2)
Quarter: 2021Q2

REPORT INFORMATION
  Report Type: Spontaneous
  Country: US (occurrence: US)
  Receive Date: 20210226
  Receipt Date: 20210423
  Transmission Date: 20210717
  Serious: No
  Sender: FDA-Public Use
  Company Number: US-PFIZER INC-2021167435

PATIENT
  Age: 59 Year
  Sex: Female

DRUGS (1)
  1. RUXIENCE [Suspect]
     Active Substance: RITUXIMAB-PVVR
     Indication: NON-HODGKIN^S LYMPHOMA
     Dosage: 750 MG (EVERY 4 WEEKS)

REACTIONS (1)
  - No adverse event [Unknown]
